FAERS Safety Report 13718267 (Version 2)
Quarter: 2017Q3

REPORT INFORMATION
  Report Type: Spontaneous
  Country: US (occurrence: US)
  Receive Date: 20170705
  Receipt Date: 20170724
  Transmission Date: 20171127
  Serious: Yes (Other)
  Sender: FDA-Public Use
  Company Number: US-PFIZER INC-2017282140

PATIENT
  Sex: Female

DRUGS (2)
  1. CELECOXIB. [Suspect]
     Active Substance: CELECOXIB
     Dosage: UNK, AS NEEDED
  2. CELECOXIB. [Suspect]
     Active Substance: CELECOXIB
     Dosage: UNK
     Route: 048

REACTIONS (9)
  - Apparent death [Unknown]
  - Choking [Unknown]
  - Pain [Unknown]
  - Product size issue [Unknown]
  - Drug ineffective [Unknown]
  - Product use complaint [Unknown]
  - Condition aggravated [Unknown]
  - Intentional product misuse [Unknown]
  - Dysphagia [Unknown]
